FAERS Safety Report 5450978-2 (Version None)
Quarter: 2007Q3

REPORT INFORMATION
  Report Type: 
  Country: None (occurrence: None)
  Receive Date: 20070911
  Receipt Date: 20070911
  Transmission Date: 20080115
  Serious: Yes (Other)
  Sender: FDA-Public Use
  Company Number: None

PATIENT

DRUGS (1)
  1. XYLOCAINE [Suspect]
     Indication: LOCAL ANAESTHESIA
     Dosage: 2% 1 SUBQ
     Route: 058
     Dates: start: 20070801, end: 20070910

REACTIONS (3)
  - FEELING ABNORMAL [None]
  - GAZE PALSY [None]
  - LETHARGY [None]
